FAERS Safety Report 11966458 (Version 1)
Quarter: 2016Q1

REPORT INFORMATION
  Report Type: Spontaneous
  Country: DK (occurrence: DK)
  Receive Date: 20160127
  Receipt Date: 20160127
  Transmission Date: 20160526
  Serious: Yes (Hospitalization, Congenital Anomaly)
  Sender: FDA-Public Use
  Company Number: DK-ELI_LILLY_AND_COMPANY-DK201601006847

PATIENT
  Age: 1 Day
  Weight: 3.44 kg

DRUGS (2)
  1. MIRTAZAPINE. [Suspect]
     Active Substance: MIRTAZAPINE
     Indication: HISTRIONIC PERSONALITY DISORDER
     Dosage: 15 MG, QD
     Route: 064
  2. CYMBALTA [Suspect]
     Active Substance: DULOXETINE HYDROCHLORIDE
     Indication: HISTRIONIC PERSONALITY DISORDER
     Dosage: 60 MG, QD
     Route: 064

REACTIONS (5)
  - Irritability [Unknown]
  - Foetal exposure during pregnancy [Recovered/Resolved]
  - Restlessness [Unknown]
  - Ventricular septal defect [Not Recovered/Not Resolved]
  - Drug withdrawal syndrome neonatal [Unknown]

NARRATIVE: CASE EVENT DATE: 201601
